FAERS Safety Report 21507854 (Version 1)
Quarter: 2022Q4

REPORT INFORMATION
  Report Type: Spontaneous
  Country: US (occurrence: None)
  Receive Date: 20221025
  Receipt Date: 20221025
  Transmission Date: 20230112
  Serious: Yes (Hospitalization)
  Sender: FDA-Public Use
  Company Number: None

PATIENT
  Sex: Male

DRUGS (1)
  1. EVEROLIMUS [Suspect]
     Active Substance: EVEROLIMUS
     Dosage: 1.5 MG BID ORAL?
     Route: 048

REACTIONS (7)
  - Impaired gastric emptying [None]
  - Urinary tract infection [None]
  - Urinary tract discomfort [None]
  - SARS-CoV-2 test positive [None]
  - Renal transplant [None]
  - Blood creatinine increased [None]
  - Therapy change [None]
